FAERS Safety Report 8233069 (Version 3)
Quarter: 2012Q4

REPORT INFORMATION
  Report Type: Spontaneous
  Country: FR (occurrence: None)
  Receive Date: 20111028
  Receipt Date: 20120817
  Transmission Date: 20130627
  Serious: Yes (Death, Life-Threatening, Hospitalization)
  Sender: FDA-Public Use
  Company Number: MPS1-1000580

PATIENT
  Age: 51 Year
  Sex: Female
  Weight: 45 kg

DRUGS (1)
  1. ALDURAZYME [Suspect]
     Indication: MUCOPOLYSACCHARIDOSIS I
     Dosage: 1000 IU/KG, QW, INTRAVENOUS
     Route: 042
     Dates: start: 20021118, end: 201206

REACTIONS (9)
  - Haemothorax [None]
  - Lung adenocarcinoma [None]
  - Metastases to pleura [None]
  - Constipation [None]
  - Respiratory failure [None]
  - General physical health deterioration [None]
  - Pericardial effusion [None]
  - Cardiac failure [None]
  - Pleural effusion [None]
